FAERS Safety Report 13425241 (Version 6)
Quarter: 2017Q4

REPORT INFORMATION
  Report Type: Report from Study
  Country: BE (occurrence: BE)
  Receive Date: 20170411
  Receipt Date: 20171005
  Transmission Date: 20180320
  Serious: Yes (Death, Hospitalization, Other)
  Sender: FDA-Public Use
  Company Number: PHHY2016BE022302

PATIENT
  Sex: Male
  Weight: 108 kg

DRUGS (4)
  1. VOTRIENT [Suspect]
     Active Substance: PAZOPANIB HYDROCHLORIDE
     Dosage: 200 MG, QD
     Route: 065
     Dates: start: 20141013, end: 20160503
  2. DAKTARIN//MICONAZOLE [Concomitant]
     Active Substance: MICONAZOLE
     Indication: PRODUCT USED FOR UNKNOWN INDICATION
     Route: 065
  3. VOTRIENT [Suspect]
     Active Substance: PAZOPANIB HYDROCHLORIDE
     Dosage: 200 MG, QD
     Route: 065
     Dates: start: 20160603, end: 20161112
  4. VOTRIENT [Suspect]
     Active Substance: PAZOPANIB HYDROCHLORIDE
     Indication: METASTATIC RENAL CELL CARCINOMA
     Dosage: 800 MG, QD
     Route: 065
     Dates: start: 20140709, end: 20140830

REACTIONS (9)
  - Metastatic renal cell carcinoma [Fatal]
  - Malignant neoplasm progression [Fatal]
  - Cerebrovascular accident [Recovered/Resolved]
  - Haematuria [Recovered/Resolved]
  - Asthenia [Fatal]
  - Anaemia [Recovered/Resolved]
  - Pain [Fatal]
  - Duodenitis haemorrhagic [Recovered/Resolved]
  - General physical health deterioration [Fatal]

NARRATIVE: CASE EVENT DATE: 20140902
